FAERS Safety Report 10384072 (Version 1)
Quarter: 2014Q1

REPORT INFORMATION
  Report Type: Spontaneous
  Country: US (occurrence: None)
  Receive Date: 20140306
  Receipt Date: 20140306
  Transmission Date: 20141002
  Serious: Yes (Hospitalization)
  Sender: FDA-Public Use
  Company Number: 163-21880-13051167

PATIENT
  Age: 66 Year
  Sex: Male

DRUGS (8)
  1. REVLIMID (LENALIDOMIDE) (CAPSULES) [Suspect]
     Indication: PLASMA CELL MYELOMA
     Dosage: 21 IN 21 D, PO
     Route: 048
     Dates: start: 20130422
  2. ACETAMINOPHEN PM EX ST(DOZOL)(UNKNOWN) [Concomitant]
  3. ACID REDUCER(RANITIDINE HYDROCHLORIDE)(UNKNOWN) [Concomitant]
  4. ASPIRIN(ACETYLSALICYLIC ACID)(UNKNOWN) [Concomitant]
  5. LISINOPRIL(LISINOPRIL)(UNKNOWN) [Concomitant]
  6. OXYCODONE HCL(OXYCODONE HYDROCHLORIDE)(UNKNOWN) [Concomitant]
  7. PROCHLORPERAZINE MALEATE(PROCHLORPERAZINE MALEATE)(UNKNOWN) [Concomitant]
  8. RENVELA(SEVELAMER CARBONATE)(UNKNOWN) [Concomitant]

REACTIONS (1)
  - Fall [None]
